FAERS Safety Report 8065141-9 (Version None)
Quarter: 2012Q1

REPORT INFORMATION
  Report Type: 
  Country: None (occurrence: None)
  Receive Date: 20120117
  Receipt Date: 20120103
  Transmission Date: 20120608
  Serious: Yes (Hospitalization)
  Sender: FDA-Public Use
  Company Number: 128241

PATIENT
  Age: 31 Year
  Sex: Female

DRUGS (1)
  1. LEUCOVORIN CALCIUM [Suspect]
     Indication: GASTROINTESTINAL CANCER METASTATIC
     Dosage: 644MG IV
     Route: 042
     Dates: start: 20111026

REACTIONS (1)
  - GASTROINTESTINAL HAEMORRHAGE [None]
